FAERS Safety Report 12648696 (Version 2)
Quarter: 2016Q3

REPORT INFORMATION
  Report Type: Spontaneous
  Country: US (occurrence: US)
  Receive Date: 20160812
  Receipt Date: 20160825
  Transmission Date: 20161109
  Serious: No
  Sender: FDA-Public Use
  Company Number: US-PFIZER INC-2016353918

PATIENT
  Age: 82 Year
  Sex: Male

DRUGS (4)
  1. MELOXICAM. [Concomitant]
     Active Substance: MELOXICAM
     Dosage: 15 MG, 1X/DAY QD
     Route: 048
     Dates: start: 20160719
  2. LISINOPRIL/HYDROCHLOORTHIAZIDE [Concomitant]
     Dosage: 1 DF (LISINOPRIL: 10 MG; HYDROCHLOROTHIAZIDE: 12.5MG), 1X/DAY (QD)
     Route: 048
     Dates: start: 20160224
  3. VIAGRA [Suspect]
     Active Substance: SILDENAFIL CITRATE
     Indication: ERECTILE DYSFUNCTION
     Dosage: 100 MG, AS NEEDED (PRN)
     Route: 048
     Dates: start: 20160628
  4. LISINOPRIL/HYDROCHLOORTHIAZIDE [Concomitant]
     Dosage: 1 DF (LISINOPRIL: 10 MG; HYDROCHLOROTHIAZIDE: 12.5MG), 1X/DAY (QD)
     Route: 048
     Dates: start: 20160224

REACTIONS (1)
  - Drug ineffective [Unknown]

NARRATIVE: CASE EVENT DATE: 2016
